FAERS Safety Report 15390625 (Version 1)
Quarter: 2018Q3

REPORT INFORMATION
  Report Type: Spontaneous
  Country: US (occurrence: US)
  Receive Date: 20180909
  Receipt Date: 20180909
  Transmission Date: 20181010
  Serious: Yes (Life-Threatening, Hospitalization, Disabling)
  Sender: FDA-Public Use
  Company Number: None

PATIENT
  Age: 64 Year
  Sex: Female
  Weight: 64.8 kg

DRUGS (5)
  1. METROPRLOL SUCC ER [Concomitant]
  2. LOW DOSE ASPIRIN [Concomitant]
     Active Substance: ASPIRIN
  3. LOSARTAN/HCTZ [Concomitant]
     Active Substance: HYDROCHLOROTHIAZIDE\LOSARTAN
  4. ZOMIG [Concomitant]
     Active Substance: ZOLMITRIPTAN
  5. VALSARTAN HCTZ 160?25MG TAB [Suspect]
     Active Substance: HYDROCHLOROTHIAZIDE\VALSARTAN
     Indication: HYPERTENSION
     Dosage: ?          QUANTITY:1 TABLET(S);?
     Route: 048

REACTIONS (3)
  - Lung neoplasm malignant [None]
  - Product use issue [None]
  - Metastatic lymphoma [None]

NARRATIVE: CASE EVENT DATE: 20160116
